FAERS Safety Report 9299789 (Version 1)
Quarter: 2013Q2

REPORT INFORMATION
  Report Type: Spontaneous
  Country: US (occurrence: US)
  Receive Date: 20130521
  Receipt Date: 20130521
  Transmission Date: 20140414
  Serious: No
  Sender: FDA-Public Use
  Company Number: US-BIOGENIDEC-2013BI044937

PATIENT
  Age: 51 Year
  Sex: Female

DRUGS (5)
  1. AVONEX [Suspect]
     Indication: MULTIPLE SCLEROSIS
     Route: 030
     Dates: start: 19980101
  2. TYSABRI [Concomitant]
     Indication: MULTIPLE SCLEROSIS
     Route: 042
     Dates: start: 20121205
  3. ALLERGY PILLS [Concomitant]
     Indication: SNEEZING
  4. ALLERGY PILLS [Concomitant]
     Indication: COUGH
  5. ALLERGY PILLS [Concomitant]
     Indication: EYE SWELLING

REACTIONS (1)
  - Memory impairment [Not Recovered/Not Resolved]
